FAERS Safety Report 4270319-6 (Version None)
Quarter: 2004Q1

REPORT INFORMATION
  Report Type: 
  Country: None (occurrence: None)
  Receive Date: 20040113
  Receipt Date: 20040113
  Transmission Date: 20041129
  Serious: Yes (Life-Threatening, Hospitalization)
  Sender: FDA-Public Use
  Company Number: None

PATIENT
  Age: 81 Year
  Sex: Male

DRUGS (1)
  1. TIMENTIN [Suspect]
     Indication: PNEUMONIA
     Dosage: 3.1 G IVPB Q6H
     Route: 042
     Dates: start: 20030801, end: 20030803

REACTIONS (3)
  - ANGIONEUROTIC OEDEMA [None]
  - JAW DISORDER [None]
  - JOINT SWELLING [None]
